FAERS Safety Report 10290386 (Version 1)
Quarter: 2014Q3

REPORT INFORMATION
  Report Type: Spontaneous
  Country: US (occurrence: None)
  Receive Date: 20140707
  Receipt Date: 20140707
  Transmission Date: 20150326
  Serious: Yes (Other)
  Sender: FDA-Public Use
  Company Number: None

PATIENT
  Age: 54 Year
  Sex: Female
  Weight: 70.31 kg

DRUGS (1)
  1. CIPROFLOXACIN. [Suspect]
     Active Substance: CIPROFLOXACIN
     Indication: SINUSITIS
     Route: 048
     Dates: start: 20140628, end: 20140703

REACTIONS (8)
  - Insomnia [None]
  - Arthralgia [None]
  - Neck pain [None]
  - Erythema [None]
  - Hyperhidrosis [None]
  - Headache [None]
  - Vision blurred [None]
  - Chromaturia [None]

NARRATIVE: CASE EVENT DATE: 20140703
